FAERS Safety Report 17331716 (Version 1)
Quarter: 2020Q1

REPORT INFORMATION
  Report Type: Spontaneous
  Country: US (occurrence: US)
  Receive Date: 20200128
  Receipt Date: 20200128
  Transmission Date: 20200409
  Serious: No
  Sender: FDA-Public Use
  Company Number: US-INCYTE CORPORATION-2020IN000662

PATIENT

DRUGS (1)
  1. JAKAFI [Suspect]
     Active Substance: RUXOLITINIB
     Dosage: 10 MILLIGRAM (2 5 MG TABS) QAM AND 5 MILLIGRAM (1 5 MG TAB) QPM
     Route: 048
     Dates: start: 201905

REACTIONS (2)
  - Product use issue [Unknown]
  - Off label use [Unknown]
